FAERS Safety Report 9825045 (Version 1)
Quarter: 2013Q4

REPORT INFORMATION
  Report Type: Spontaneous
  Country: US (occurrence: None)
  Receive Date: 20131223
  Receipt Date: 20131223
  Transmission Date: 20140711
  Serious: Yes (Other)
  Sender: FDA-Public Use
  Company Number: 217435LEO

PATIENT
  Age: 57 Year
  Sex: Male

DRUGS (1)
  1. PICATO [Suspect]
     Indication: ACTINIC KERATOSIS
     Dosage: 1 IN 1 D
     Route: 061
     Dates: start: 20120429, end: 20120430

REACTIONS (8)
  - Application site dryness [None]
  - Application site swelling [None]
  - Application site exfoliation [None]
  - Application site vesicles [None]
  - Application site pain [None]
  - Application site pruritus [None]
  - Application site pruritus [None]
  - Application site pain [None]
